FAERS Safety Report 8458726 (Version 6)
Quarter: 2013Q2

REPORT INFORMATION
  Report Type: Report from Study
  Country: AT (occurrence: AT)
  Receive Date: 20120314
  Receipt Date: 20130618
  Transmission Date: 20140414
  Serious: Yes (Hospitalization)
  Sender: FDA-Public Use
  Company Number: AT-ROCHE-1040950

PATIENT
  Age: 43 Year
  Sex: Male
  Weight: 83 kg

DRUGS (8)
  1. PEG-INTERFERON ALFA 2A [Suspect]
     Indication: CHRONIC HEPATITIS C
     Dosage: DOSAGE FORM: SPI
     Route: 058
     Dates: start: 20110922, end: 20120206
  2. RIBAVIRIN [Suspect]
     Indication: CHRONIC HEPATITIS C
     Route: 048
     Dates: start: 20110922, end: 20120206
  3. BLINDED BI 201335 [Suspect]
     Indication: CHRONIC HEPATITIS C
     Dosage: DOSAGE FORM: KAW
     Route: 048
     Dates: start: 20111215, end: 20120206
  4. ACEMIN [Concomitant]
     Indication: HYPERTENSION
     Route: 065
     Dates: start: 20111006, end: 20120226
  5. AERIUS [Concomitant]
     Route: 050
     Dates: start: 20110202, end: 20120612
  6. ACECOMB [Concomitant]
     Indication: HYPERTENSION
     Route: 050
     Dates: start: 20120227
  7. SELOKEN RETARD [Concomitant]
     Indication: HYPERTENSION
     Route: 050
     Dates: start: 20120227
  8. PANTOLOC [Concomitant]
     Indication: PROPHYLAXIS
     Dosage: FOR PROPHYLAXIS
     Route: 065
     Dates: start: 20120227, end: 20120327

REACTIONS (3)
  - Rash maculo-papular [Recovered/Resolved with Sequelae]
  - Blister [Recovered/Resolved with Sequelae]
  - Drug reaction with eosinophilia and systemic symptoms [Recovered/Resolved with Sequelae]
